FAERS Safety Report 12853026 (Version 1)
Quarter: 2016Q4

REPORT INFORMATION
  Report Type: Spontaneous
  Country: US (occurrence: US)
  Receive Date: 20161017
  Receipt Date: 20161017
  Transmission Date: 20170207
  Serious: No
  Sender: FDA-Public Use
  Company Number: US-JAZZ-2016-US-013989

PATIENT
  Age: 47 Year
  Sex: Female

DRUGS (9)
  1. XYREM [Suspect]
     Active Substance: SODIUM OXYBATE
     Indication: NARCOLEPSY
     Dosage: 2.25 G, BID
     Route: 048
     Dates: start: 20160712, end: 201607
  2. RIZATRIPTAN. [Concomitant]
     Active Substance: RIZATRIPTAN
  3. HUMALOG [Concomitant]
     Active Substance: INSULIN LISPRO
  4. LYRICA [Concomitant]
     Active Substance: PREGABALIN
  5. NUVIGIL [Concomitant]
     Active Substance: ARMODAFINIL
  6. XANAX [Concomitant]
     Active Substance: ALPRAZOLAM
  7. ADDERALL [Concomitant]
     Active Substance: AMPHETAMINE ASPARTATE\AMPHETAMINE SULFATE\DEXTROAMPHETAMINE SACCHARATE\DEXTROAMPHETAMINE SULFATE
  8. TOPIRAMATE. [Concomitant]
     Active Substance: TOPIRAMATE
  9. XYREM [Suspect]
     Active Substance: SODIUM OXYBATE
     Indication: CATAPLEXY
     Dosage: 3 G, BID
     Route: 048
     Dates: start: 201607

REACTIONS (1)
  - Nasopharyngitis [Not Recovered/Not Resolved]

NARRATIVE: CASE EVENT DATE: 20160725
